FAERS Safety Report 9828296 (Version 2)
Quarter: 2014Q1

REPORT INFORMATION
  Report Type: Spontaneous
  Country: US (occurrence: None)
  Receive Date: 20131120
  Receipt Date: 20140218
  Transmission Date: 20141002
  Serious: No
  Sender: FDA-Public Use
  Company Number: 1000049365

PATIENT
  Age: 51 Year
  Sex: Female

DRUGS (4)
  1. VIIBRYD [Suspect]
     Indication: DEPRESSION
     Route: 048
     Dates: start: 20130901, end: 20130907
  2. BIRTH CONTROL NOS (BIRTH CONTROL NOS) (BIRTH CONTROL NOS) [Concomitant]
  3. SUPPLEMENT FOR MENOPAUSE NOS (SUPPLEMENT FOR MENOPAUSE NOS) (SUPPLEMENT FOR MENOPAUSE NOS) [Concomitant]
  4. XANAX (ALPRAZOLAM) [Concomitant]

REACTIONS (3)
  - Diarrhoea [None]
  - Abnormal dreams [None]
  - Pruritus [None]
